FAERS Safety Report 8319251-9 (Version None)
Quarter: 2012Q2

REPORT INFORMATION
  Report Type: 
  Country: None (occurrence: None)
  Receive Date: 20120427
  Receipt Date: 20120417
  Transmission Date: 20120825
  Serious: Yes (Hospitalization)
  Sender: FDA-Public Use
  Company Number: US-ABBOTT-12P-163-0927883-00

PATIENT
  Sex: Female
  Weight: 46.762 kg

DRUGS (3)
  1. HUMIRA [Suspect]
     Dates: start: 20120407, end: 20120407
  2. TOPAMAX [Concomitant]
     Indication: MIGRAINE
  3. HUMIRA [Suspect]
     Indication: CROHN'S DISEASE
     Dates: start: 20120320, end: 20120320

REACTIONS (8)
  - VOMITING [None]
  - CONSTIPATION [None]
  - ABDOMINAL DISTENSION [None]
  - CONTUSION [None]
  - INTESTINAL OBSTRUCTION [None]
  - ABSCESS BACTERIAL [None]
  - GASTROINTESTINAL INFLAMMATION [None]
  - ENTEROCOLITIS [None]
